FAERS Safety Report 10435108 (Version 2)
Quarter: 2014Q3

REPORT INFORMATION
  Report Type: Spontaneous
  Country: IT (occurrence: None)
  Receive Date: 20140618
  Receipt Date: 20140703
  Transmission Date: 20150326
  Serious: Yes (Hospitalization)
  Sender: FDA-Public Use
  Company Number: AUR-APL-2014-06119

PATIENT
  Age: 81 Year
  Sex: Female

DRUGS (1)
  1. CEFTRIAXONE (CEFTRIAXONE) UNKNOWN [Suspect]
     Active Substance: CEFTRIAXONE
     Indication: PNEUMONITIS
     Route: 042
     Dates: start: 20140214, end: 20140214

REACTIONS (4)
  - Oxygen saturation decreased [None]
  - Hypotension [None]
  - Hypersensitivity [None]
  - Respiratory arrest [None]

NARRATIVE: CASE EVENT DATE: 20140214
